FAERS Safety Report 8933021 (Version 1)
Quarter: 2012Q4

REPORT INFORMATION
  Report Type: 
  Country: US (occurrence: US)
  Receive Date: 20121128
  Receipt Date: 20121128
  Transmission Date: 20130627
  Serious: Yes (Hospitalization, Disabling, Other)
  Sender: FDA-Public Use
  Company Number: US-009507513-1203USA00212

PATIENT
  Age: 86 Year
  Sex: Female
  Weight: 72.56 kg

DRUGS (4)
  1. FOSAMAX [Suspect]
     Indication: OSTEOPOROSIS
     Dosage: 70 mg, QW
     Route: 048
     Dates: start: 2007, end: 20111211
  2. LOPRESSOR [Concomitant]
     Indication: CORONARY ARTERY DISEASE
     Dosage: 25 mg, qd
     Route: 048
  3. ASPIRIN [Concomitant]
     Indication: CORONARY ARTERY DISEASE
     Dosage: 81 mg, qd
     Route: 048
  4. OMEPRAZOLE SODIUM [Concomitant]
     Indication: GASTROOESOPHAGEAL REFLUX DISEASE
     Dosage: 20 mg, qd
     Route: 048

REACTIONS (7)
  - Atypical femur fracture [Recovered/Resolved]
  - Femur fracture [Unknown]
  - Stress fracture [Unknown]
  - Arthritis [Unknown]
  - Bone disorder [Unknown]
  - Pain [Unknown]
  - Pain in extremity [Unknown]
